FAERS Safety Report 15508303 (Version 10)
Quarter: 2024Q4

REPORT INFORMATION
  Report Type: Report from Study
  Country: NL (occurrence: NL)
  Receive Date: 20181016
  Receipt Date: 20241029
  Transmission Date: 20250115
  Serious: Yes (Hospitalization)
  Sender: SANOFI AVENTIS
  Company Number: NL-SA-2018SA282328

PATIENT
  Age: 34 Year
  Sex: Female
  Weight: 59 kg

DRUGS (16)
  1. ALEMTUZUMAB [Suspect]
     Active Substance: ALEMTUZUMAB
     Indication: Relapsing multiple sclerosis
     Dosage: 12 MG, QD
     Route: 041
     Dates: start: 20180529, end: 20180529
  2. ALEMTUZUMAB [Suspect]
     Active Substance: ALEMTUZUMAB
     Dosage: 10 MG, QD
     Route: 041
     Dates: start: 20180613, end: 20180614
  3. ALEMTUZUMAB [Suspect]
     Active Substance: ALEMTUZUMAB
     Dosage: 12 MG, QD
     Route: 041
     Dates: start: 20190430, end: 20190502
  4. LEVONORGESTREL [Concomitant]
     Active Substance: LEVONORGESTREL
     Dosage: UNK
     Route: 015
     Dates: start: 20160325
  5. RANITIDINE [Concomitant]
     Active Substance: RANITIDINE
     Indication: Prophylaxis
     Dosage: UNK
     Route: 048
     Dates: start: 20180528, end: 20180614
  6. VALACYCLOVIR HYDROCHLORIDE [Concomitant]
     Active Substance: VALACYCLOVIR HYDROCHLORIDE
     Indication: Prophylaxis
     Dosage: UNK
     Route: 048
     Dates: start: 20180529, end: 20180712
  7. TEMAZEPAM [Concomitant]
     Active Substance: TEMAZEPAM
     Indication: Prophylaxis
     Dosage: UNK
     Route: 048
     Dates: start: 20170808, end: 20181115
  8. CETIRIZINE HYDROCHLORIDE [Concomitant]
     Active Substance: CETIRIZINE HYDROCHLORIDE
     Indication: Prophylaxis
     Dosage: UNK
     Route: 048
     Dates: start: 20180528, end: 20180614
  9. CLEMASTINE [Concomitant]
     Active Substance: CLEMASTINE
     Indication: Prophylaxis
     Dosage: UNK
     Route: 042
     Dates: start: 20180529, end: 20180529
  10. CLEMASTINE [Concomitant]
     Active Substance: CLEMASTINE
     Dosage: UNK
     Route: 042
     Dates: start: 20180601, end: 20180601
  11. CLEMASTINE [Concomitant]
     Active Substance: CLEMASTINE
     Dosage: UNK
     Route: 042
     Dates: start: 20180612, end: 20180614
  12. METHYLPREDNISOLONE [Concomitant]
     Active Substance: METHYLPREDNISOLONE
     Indication: Prophylaxis
     Dosage: UNK
     Route: 042
     Dates: start: 20180528, end: 20180529
  13. METHYLPREDNISOLONE [Concomitant]
     Active Substance: METHYLPREDNISOLONE
     Dosage: UNK
     Route: 042
     Dates: start: 20180601, end: 20180601
  14. METHYLPREDNISOLONE [Concomitant]
     Active Substance: METHYLPREDNISOLONE
     Dosage: UNK
     Route: 042
     Dates: start: 20180612, end: 20180612
  15. ISONIAZID\RIFAMPIN [Concomitant]
     Active Substance: ISONIAZID\RIFAMPIN
     Indication: Prophylaxis
     Dosage: UNK
     Route: 048
     Dates: start: 20180426, end: 20180826
  16. ISONIAZID [Concomitant]
     Active Substance: ISONIAZID
     Indication: Prophylaxis
     Dosage: UNK
     Route: 048
     Dates: start: 20180426, end: 20180526

REACTIONS (6)
  - C-reactive protein increased [Recovered/Resolved]
  - Malaise [Recovered/Resolved]
  - Malaise [Recovered/Resolved]
  - Neck pain [Recovered/Resolved]
  - Burn infection [Recovered/Resolved]
  - Nasopharyngitis [Recovered/Resolved]

NARRATIVE: CASE EVENT DATE: 20180529
